FAERS Safety Report 4595097-2 (Version None)
Quarter: 2005Q1

REPORT INFORMATION
  Report Type: 
  Country: None (occurrence: None)
  Receive Date: 20050223
  Receipt Date: 20050211
  Transmission Date: 20050727
  Serious: Yes (Hospitalization)
  Sender: FDA-Public Use
  Company Number: 6013053

PATIENT
  Age: 94 Year
  Sex: Male

DRUGS (2)
  1. CARDENSIEL 1.25 MG(TABLETS) (BISOPROLOL) [Suspect]
     Dosage: 1 DOSAGE FORMS (1 DOSAGE FORMS, 1 IN 1 D), ORAL
     Route: 048
     Dates: start: 20041023, end: 20041108
  2. CLONAZEPAM [Suspect]
     Dates: end: 20041102

REACTIONS (1)
  - CYTOLYTIC HEPATITIS [None]
